FAERS Safety Report 21631534 (Version 2)
Quarter: 2022Q4

REPORT INFORMATION
  Report Type: Spontaneous
  Country: CA (occurrence: CA)
  Receive Date: 20221123
  Receipt Date: 20221220
  Transmission Date: 20230112
  Serious: No
  Sender: FDA-Public Use
  Company Number: CA-BIOCODEX2-2022001641

PATIENT
  Age: 21 Year
  Sex: Male

DRUGS (1)
  1. DIACOMIT [Suspect]
     Active Substance: STIRIPENTOL
     Indication: Severe myoclonic epilepsy of infancy
     Dosage: 250 MG DAILY (THE PATIENT OPENED THE CAPSULE)
     Route: 048

REACTIONS (1)
  - Wrong technique in product usage process [Unknown]
